FAERS Safety Report 9801757 (Version 1)
Quarter: 2014Q1

REPORT INFORMATION
  Report Type: Spontaneous
  Country: CA (occurrence: CA)
  Receive Date: 20140107
  Receipt Date: 20140107
  Transmission Date: 20141002
  Serious: Yes (Other)
  Sender: FDA-Public Use
  Company Number: CA-GLAXOSMITHKLINE-A1055418A

PATIENT
  Sex: Female

DRUGS (3)
  1. WELLBUTRIN XL [Suspect]
     Indication: AFFECTIVE DISORDER
     Dosage: 300MG PER DAY
     Route: 065
     Dates: start: 2011
  2. WELLBUTRIN XL [Suspect]
     Indication: AFFECTIVE DISORDER
     Dosage: 150MG PER DAY
     Route: 065
  3. WELLBUTRIN SR [Suspect]
     Indication: AFFECTIVE DISORDER
     Dosage: 150MG PER DAY
     Route: 065
     Dates: start: 2010

REACTIONS (2)
  - Exophthalmos [Unknown]
  - Vision blurred [Recovered/Resolved]
